FAERS Safety Report 17508676 (Version 2)
Quarter: 2021Q1

REPORT INFORMATION
  Report Type: Spontaneous
  Country: US (occurrence: US)
  Receive Date: 20200306
  Receipt Date: 20210113
  Transmission Date: 20210419
  Serious: No
  Sender: FDA-Public Use
  Company Number: US-SHIRE-US202008685

PATIENT
  Sex: Female
  Weight: 46.26 kg

DRUGS (4)
  1. GATTEX [Suspect]
     Active Substance: TEDUGLUTIDE\WATER
     Indication: PRODUCT USED FOR UNKNOWN INDICATION
     Dosage: 0.1700 UNIT UNKNOWN, 1X/DAY:QD
     Route: 058
     Dates: start: 20200206
  2. GATTEX [Suspect]
     Active Substance: TEDUGLUTIDE\WATER
     Indication: PRODUCT USED FOR UNKNOWN INDICATION
     Dosage: 0.1700 UNIT UNKNOWN, 1X/DAY:QD
     Route: 058
     Dates: start: 20200206
  3. GATTEX [Suspect]
     Active Substance: TEDUGLUTIDE\WATER
     Indication: PRODUCT USED FOR UNKNOWN INDICATION
     Dosage: 0.1700 UNIT UNKNOWN, 1X/DAY:QD
     Route: 058
     Dates: start: 20200206
  4. GATTEX [Suspect]
     Active Substance: TEDUGLUTIDE\WATER
     Indication: PRODUCT USED FOR UNKNOWN INDICATION
     Dosage: 0.1700 UNIT UNKNOWN, 1X/DAY:QD
     Route: 058
     Dates: start: 20200206

REACTIONS (2)
  - Muscle spasms [Unknown]
  - Weight increased [Unknown]
